FAERS Safety Report 9705345 (Version 1)
Quarter: 2013Q4

REPORT INFORMATION
  Report Type: Spontaneous
  Country: US (occurrence: US)
  Receive Date: 20131122
  Receipt Date: 20131122
  Transmission Date: 20140711
  Serious: Yes (Other)
  Sender: FDA-Public Use
  Company Number: US-BRISTOL-MYERS SQUIBB COMPANY-19801133

PATIENT
  Sex: Female

DRUGS (4)
  1. COUMADIN [Suspect]
  2. CLOPIDOGREL BISULFATE [Suspect]
  3. PRILOSEC [Suspect]
  4. JANTOVEN [Suspect]

REACTIONS (3)
  - Myocardial infarction [Unknown]
  - Vision blurred [Unknown]
  - Headache [Unknown]
